FAERS Safety Report 10263626 (Version 1)
Quarter: 2014Q2

REPORT INFORMATION
  Report Type: Spontaneous
  Country: DE (occurrence: DE)
  Receive Date: 20140626
  Receipt Date: 20140626
  Transmission Date: 20141212
  Serious: Yes (Other)
  Sender: FDA-Public Use
  Company Number: DE-MYLANLABS-2014S1014373

PATIENT
  Age: 3 Year
  Sex: Male
  Weight: 15 kg

DRUGS (2)
  1. MONTELUKAST [Suspect]
     Indication: ASTHMA
     Dosage: DAILY DOSE: 4 MG MILLGRAM(S) EVERY DAYS
     Route: 048
     Dates: start: 20140404, end: 20140514
  2. SALBUTAMOL [Concomitant]
     Indication: ASTHMA
     Dosage: BIS ZU 4X/D
     Route: 055
     Dates: start: 2011

REACTIONS (5)
  - Psychomotor hyperactivity [Recovered/Resolved]
  - Coordination abnormal [Recovered/Resolved]
  - Sleep disorder [Recovered/Resolved]
  - Nightmare [Recovered/Resolved]
  - Acne [Recovered/Resolved]
